FAERS Safety Report 4742869-7 (Version None)
Quarter: 2005Q3

REPORT INFORMATION
  Report Type: 
  Country: None (occurrence: None)
  Receive Date: 20050811
  Receipt Date: 20050801
  Transmission Date: 20060218
  Serious: Yes (Other)
  Sender: FDA-Public Use
  Company Number: 2005AC01149

PATIENT
  Age: 36 Year
  Sex: Male

DRUGS (2)
  1. ROSUVASTATIN [Suspect]
     Route: 048
  2. ACENOCOUMAROL [Interacting]
     Route: 048

REACTIONS (4)
  - DRUG INTERACTION [None]
  - HAEMATOMA [None]
  - INTERNATIONAL NORMALISED RATIO INCREASED [None]
  - REBOUND EFFECT [None]
